FAERS Safety Report 21728442 (Version 1)
Quarter: 2022Q4

REPORT INFORMATION
  Report Type: Spontaneous
  Country: US (occurrence: US)
  Receive Date: 20221214
  Receipt Date: 20221214
  Transmission Date: 20230112
  Serious: Yes (Death, Other)
  Sender: FDA-Public Use
  Company Number: US-MYLANLABS-2022M1138594

PATIENT
  Age: 28 Year
  Sex: Female

DRUGS (3)
  1. TEMOZOLOMIDE [Suspect]
     Active Substance: TEMOZOLOMIDE
     Indication: Glioblastoma
     Dosage: 150 MILLIGRAM/SQ. METER
     Route: 065
  2. TEMOZOLOMIDE [Suspect]
     Active Substance: TEMOZOLOMIDE
     Dosage: UNK
     Route: 065
     Dates: start: 201506, end: 201603
  3. VISMODEGIB [Suspect]
     Active Substance: VISMODEGIB
     Indication: Glioblastoma
     Dosage: 150 MILLIGRAM, QD
     Route: 048
     Dates: start: 201506, end: 201605

REACTIONS (2)
  - Drug ineffective [Fatal]
  - Disease progression [Unknown]
